FAERS Safety Report 5806285-9 (Version None)
Quarter: 2008Q3

REPORT INFORMATION
  Report Type: 
  Country: None (occurrence: None)
  Receive Date: 20080708
  Receipt Date: 20080620
  Transmission Date: 20090109
  Serious: Yes (Death)
  Sender: FDA-Public Use
  Company Number: 2008S1000078

PATIENT
  Sex: Female

DRUGS (1)
  1. INOMAX [Suspect]
     Indication: PULMONARY HYPERTENSION
     Dosage: 20 PPM;CONT;INH
     Route: 055
     Dates: start: 20080615, end: 20080615

REACTIONS (2)
  - DEVICE FAILURE [None]
  - RESPIRATORY FAILURE [None]
